FAERS Safety Report 6240443-7 (Version None)
Quarter: 2009Q2

REPORT INFORMATION
  Report Type: 
  Country: None (occurrence: None)
  Receive Date: 20090623
  Receipt Date: 20090619
  Transmission Date: 20091009
  Serious: Yes (Life-Threatening, Hospitalization)
  Sender: FDA-Public Use
  Company Number: AU-ASTRAZENECA-2009SE02964

PATIENT
  Age: 17759 Day
  Sex: Male

DRUGS (4)
  1. SEROQUEL XR [Suspect]
     Indication: DEPRESSION
     Dosage: UP TO 300 MG/DAY
     Route: 048
     Dates: start: 20090612
  2. SEROQUEL XR [Suspect]
     Dosage: 4 TABLETS AT NIGHT AND 4 TABLETS IN THE FOLLOWING MORNING
     Route: 048
     Dates: start: 20090619
  3. CIPRAMIL [Concomitant]
     Indication: DEPRESSION
     Route: 048
  4. ALEPAM [Concomitant]
     Route: 048

REACTIONS (4)
  - DISORIENTATION [None]
  - IMMOBILE [None]
  - OVERDOSE [None]
  - SOMNOLENCE [None]
